FAERS Safety Report 23528720 (Version 1)
Quarter: 2024Q1

REPORT INFORMATION
  Report Type: Report from Study
  Country: US (occurrence: US)
  Receive Date: 20240215
  Receipt Date: 20240215
  Transmission Date: 20240409
  Serious: Yes (Disabling, Other)
  Sender: FDA-Public Use
  Company Number: US-ABBVIE-5639070

PATIENT
  Age: 77 Year
  Sex: Male

DRUGS (21)
  1. VENCLEXTA [Suspect]
     Active Substance: VENETOCLAX
     Indication: Chronic lymphocytic leukaemia
     Dosage: FORM STRENGTH: 100 MILLIGRAM?DURATION TEXT: WEEK 4
     Route: 048
     Dates: start: 2023, end: 2023
  2. VENCLEXTA [Suspect]
     Active Substance: VENETOCLAX
     Indication: Chronic lymphocytic leukaemia
     Dosage: FORM STRENGTH: 100 MILLIGRAM?DURATION TEXT: WEEK 3
     Route: 048
     Dates: start: 2023, end: 2023
  3. VENCLEXTA [Suspect]
     Active Substance: VENETOCLAX
     Indication: Chronic lymphocytic leukaemia
     Dosage: FORM STRENGTH: 100 MILLIGRAM
     Route: 048
  4. VENCLEXTA [Suspect]
     Active Substance: VENETOCLAX
     Indication: Chronic lymphocytic leukaemia
     Dosage: FORM STRENGTH: 50 MILLIGRAM?DURATION TEXT: WEEK 2
     Route: 048
     Dates: start: 2023, end: 2023
  5. VENCLEXTA [Suspect]
     Active Substance: VENETOCLAX
     Indication: Chronic lymphocytic leukaemia
     Dosage: STOP DATE : 2023
     Route: 048
     Dates: start: 202303
  6. VENCLEXTA [Suspect]
     Active Substance: VENETOCLAX
     Indication: Chronic lymphocytic leukaemia
     Dosage: TAKE 20MG(2X10MG TABS) BY MOUTH EVERY DAY ON WEEK 1?DURATION TEXT: WEEK 1?FORM STRENGTH: 10 MILLI...
     Route: 048
     Dates: start: 20230224, end: 20230324
  7. COMPAZINE [Concomitant]
     Active Substance: PROCHLORPERAZINE MALEATE
     Indication: Vomiting
     Dosage: TAKE 1 TABLET (10 MG) BY MOUTH EVERY 6 HOURS AS NEEDED?FORM STRENGTH: 10 MILLIGRAM
     Route: 048
     Dates: start: 20230224
  8. AVAPRO [Concomitant]
     Active Substance: IRBESARTAN
     Indication: Product used for unknown indication
     Dosage: TAKE 1 TABLET (75 MG) BY MOUTH DAILY - ORAL?FORM STRENGTH: 75 MILLIGRAM
     Route: 048
     Dates: start: 20211118
  9. ELAVIL [Concomitant]
     Active Substance: AMITRIPTYLINE HYDROCHLORIDE
     Indication: Product used for unknown indication
     Dosage: TAKE 2 TABLETS (20 MG) BY MOUTH?ELAVIL-EQUIVALENT?FORM STRENGTH: 10 MILLIGRAM
     Route: 048
     Dates: start: 20201231
  10. ZINC [Concomitant]
     Active Substance: PYRITHIONE ZINC\ZINC\ZINC CHLORIDE
     Indication: Product used for unknown indication
     Dosage: PO TAKE 1 TABLET BY MOUTH EVERY OTHER DAY - ORAL?ZINC NATURAL
     Route: 048
  11. ZYLOPRIM [Concomitant]
     Active Substance: ALLOPURINOL
     Indication: Product used for unknown indication
     Dosage: TAKE 1 TABLET (300 MG) BY MOUTH DAILY - ORAL?FORM STRENGTH: 300 MILLIGRAM
     Route: 048
     Dates: start: 20230224
  12. COLLAGEN BOVINE [Concomitant]
     Indication: Product used for unknown indication
     Dosage: BY APPLY EXTERNALLY ROUTE ONCE A DAY - APPLY EXTERNALLY?FORM STRENGTH: 100 PERCENT
     Route: 061
  13. LOVAZA [Concomitant]
     Active Substance: OMEGA-3-ACID ETHYL ESTERS
     Indication: Product used for unknown indication
     Dosage: TAKE 2 G BY MOUTH DAILY - ORAL?FORM STRENGTH: 1 GRAM
     Route: 048
  14. VITAMIN B COMPLEX WITH C [Concomitant]
     Active Substance: ASCORBIC ACID\CALCIUM PANTOTHENATE\CYANOCOBALAMIN\NIACINAMIDE\PYRIDOXINE HYDROCHLORIDE\RIBOFLAVIN\TH
     Indication: Product used for unknown indication
     Dosage: PO TAKE 1 TABLET BY MOUTH DAILY - ORAL?VITAMIN B COMPLEX-C
     Route: 048
  15. NEXIUM [Concomitant]
     Active Substance: ESOMEPRAZOLE MAGNESIUM
     Indication: Product used for unknown indication
     Dosage: TAKE BY MOUTH - ORAL?FORM STRENGTH: 20 MILLIGRAM
     Route: 048
     Dates: start: 20200613
  16. FERROUS SULFATE [Concomitant]
     Active Substance: FERROUS SULFATE
     Indication: Product used for unknown indication
     Dosage: TAKE 1 TABLET (325 MG) BY MOUTH EVERY OTHER DAY - ORAL (65 MG IRON)?FORM STRENGTH: 325 MILLIGRAM
     Route: 048
  17. ZOVIRAX [Concomitant]
     Active Substance: ACYCLOVIR
     Indication: Product used for unknown indication
     Dosage: TAKE 1 TABLET (400 MG) BY MOUTH 2 TIMES DAILY - ORAL?FORM STRENGTH: 400 MILLIGRAM
     Route: 048
     Dates: start: 20230224
  18. VITAMIN E [Concomitant]
     Active Substance: .ALPHA.-TOCOPHEROL
     Indication: Product used for unknown indication
     Dosage: TAKE 1 CAPSULE (400 UNITS) BY MOUTH DAILY - ORAL?FORM STRENGTH: 400 UNIT
     Route: 048
  19. FISH OIL [Concomitant]
     Active Substance: FISH OIL
     Indication: Product used for unknown indication
     Dosage: TAKE BY MOUTH - ORAL
     Route: 048
  20. ZOFRAN [Concomitant]
     Active Substance: ONDANSETRON HYDROCHLORIDE
     Indication: Nausea
     Dosage: TAKE 1 TABLET (8 MG) BY MOUTH EVERY 8 HOURS AS NEEDED FOR NAUSEA AND VOMITING -  ORA?FORM STRENGT...
     Route: 048
     Dates: start: 20230224
  21. COMBIGAN [Concomitant]
     Active Substance: BRIMONIDINE TARTRATE\TIMOLOL MALEATE
     Indication: Product used for unknown indication
     Dosage: ROUTE PLACE 1 DROP IN RIGHT EYE 2 TIMES DAILY - RIGHT EYE?FORM STRENGTH: 0.24 PERCENT
     Route: 047
     Dates: start: 20221014, end: 20231014

REACTIONS (3)
  - Spinal fracture [Unknown]
  - Nausea [Recovered/Resolved]
  - Frustration tolerance decreased [Unknown]

NARRATIVE: CASE EVENT DATE: 20230301
